FAERS Safety Report 21069099 (Version 2)
Quarter: 2024Q3

REPORT INFORMATION
  Report Type: Spontaneous
  Country: US (occurrence: US)
  Receive Date: 20220712
  Receipt Date: 20240722
  Transmission Date: 20241016
  Serious: No
  Sender: ASTELLAS
  Company Number: US-ASTELLAS-2021US040037

PATIENT
  Sex: Female

DRUGS (3)
  1. MYRBETRIQ [Suspect]
     Active Substance: MIRABEGRON
     Indication: Hypertonic bladder
     Dosage: UNK UNK, ONCE DAILY (ONE EACH NIGHT)
     Route: 065
     Dates: end: 2021
  2. MYRBETRIQ [Suspect]
     Active Substance: MIRABEGRON
     Indication: Incontinence
  3. DESMOPRESSIN [Concomitant]
     Active Substance: DESMOPRESSIN
     Indication: Bladder disorder
     Dosage: 0.2 MG, ONCE DAILY (UNDER THE TONGUE EVERY NIGHT AT BEDTIME)
     Route: 060
     Dates: start: 201902

REACTIONS (3)
  - Nocturia [Unknown]
  - Sleep disorder [Unknown]
  - Drug ineffective [Unknown]
